FAERS Safety Report 18437827 (Version 2)
Quarter: 2020Q4

REPORT INFORMATION
  Report Type: Report from Study
  Country: None (occurrence: DE)
  Receive Date: 20201028
  Receipt Date: 20201102
  Transmission Date: 20210114
  Serious: Yes (Hospitalization)
  Sender: FDA-Public Use
  Company Number: DE-ABBVIE-20K-062-3627352-00

PATIENT
  Age: 54 Year
  Sex: Male
  Weight: 59 kg

DRUGS (8)
  1. MAVIRET [Suspect]
     Active Substance: GLECAPREVIR\PIBRENTASVIR
     Indication: CHRONIC HEPATITIS C
     Dosage: 100 MG GLECAPREVIR / 40 MG PIBRENTASVIR / 3 TABLET DAILY
     Route: 048
     Dates: start: 20190524, end: 20190721
  2. EMTRICITABIN TENOFOVIR [Concomitant]
     Active Substance: EMTRICITABINE\TENOFOVIR
     Indication: HIV INFECTION
  3. MILGAMMA [Concomitant]
     Indication: PRODUCT USED FOR UNKNOWN INDICATION
     Dates: start: 20190325
  4. SPASMEX [Concomitant]
     Indication: PRODUCT USED FOR UNKNOWN INDICATION
     Dates: start: 20190325
  5. PANTOPRAZOL [Concomitant]
     Active Substance: PANTOPRAZOLE SODIUM
     Indication: PRODUCT USED FOR UNKNOWN INDICATION
     Dates: start: 20150826
  6. TENOFOVIR ALAFENAMIDE [Concomitant]
     Active Substance: TENOFOVIR ALAFENAMIDE
     Indication: HIV INFECTION
  7. TAMSULOSIN [Concomitant]
     Active Substance: TAMSULOSIN
     Indication: PRODUCT USED FOR UNKNOWN INDICATION
     Dates: start: 20190325
  8. KREON [Concomitant]
     Active Substance: PANCRELIPASE
     Indication: PRODUCT USED FOR UNKNOWN INDICATION

REACTIONS (3)
  - Headache [Recovered/Resolved]
  - Fatigue [Recovering/Resolving]
  - Gastrointestinal disorder [Recovered/Resolved with Sequelae]

NARRATIVE: CASE EVENT DATE: 20191203
